FAERS Safety Report 6931048-0 (Version None)
Quarter: 2010Q3

REPORT INFORMATION
  Report Type: 
  Country: None (occurrence: None)
  Receive Date: 20100818
  Receipt Date: 20100809
  Transmission Date: 20110219
  Serious: Yes (Hospitalization)
  Sender: FDA-Public Use
  Company Number: US-BAXTER-2010BH017193

PATIENT
  Age: 81 Year
  Sex: Male
  Weight: 75 kg

DRUGS (1)
  1. DIANEAL [Suspect]
     Indication: PERITONEAL DIALYSIS
     Route: 033

REACTIONS (3)
  - ABDOMINAL DISTENSION [None]
  - PERIPHERAL EMBOLISM [None]
  - PERITONEAL DIALYSIS COMPLICATION [None]
